FAERS Safety Report 18155725 (Version 1)
Quarter: 2020Q3

REPORT INFORMATION
  Report Type: Spontaneous
  Country: BR (occurrence: BR)
  Receive Date: 20200817
  Receipt Date: 20200817
  Transmission Date: 20201103
  Serious: Yes (Hospitalization)
  Sender: FDA-Public Use
  Company Number: BR-ROCHE-2659524

PATIENT
  Sex: Female

DRUGS (1)
  1. MABTHERA [Suspect]
     Active Substance: RITUXIMAB
     Indication: EVANS SYNDROME
     Route: 042

REACTIONS (4)
  - Product administered to patient of inappropriate age [Unknown]
  - Off label use [Unknown]
  - Intentional product use issue [Unknown]
  - Seizure [Unknown]
